FAERS Safety Report 21077033 (Version 1)
Quarter: 2022Q3

REPORT INFORMATION
  Report Type: Spontaneous
  Country: US (occurrence: None)
  Receive Date: 20220713
  Receipt Date: 20220713
  Transmission Date: 20221027
  Serious: Yes (Hospitalization)
  Sender: FDA-Public Use
  Company Number: None

PATIENT
  Sex: Female

DRUGS (4)
  1. TACROLIMUS [Suspect]
     Active Substance: TACROLIMUS
     Indication: Heart transplant
     Dosage: FREQUENCY : DAILY;?
     Route: 048
     Dates: start: 20200206
  2. METFORMIN TAB [Concomitant]
  3. SIROLIMUS [Concomitant]
     Active Substance: SIROLIMUS
  4. TACROLIMUS [Suspect]
     Active Substance: TACROLIMUS
     Indication: Heart transplant
     Dosage: TAKE 1 CAPSULE (0.5 MG) BY MOUTH EVERY MORNING AND 2 CAPSULES (1 MG) EVERY EVENING.
     Route: 048
     Dates: start: 20200206

REACTIONS (1)
  - Gallbladder operation [None]
